FAERS Safety Report 25231795 (Version 1)
Quarter: 2025Q2

REPORT INFORMATION
  Report Type: Other
  Country: AU (occurrence: AU)
  Receive Date: 20250423
  Receipt Date: 20250423
  Transmission Date: 20250716
  Serious: Yes (Hospitalization)
  Sender: B BRAUN
  Company Number: AU-B.Braun Medical Inc.-2175476

PATIENT
  Age: 27 Year
  Sex: Female

DRUGS (4)
  1. DEXTROSE [Suspect]
     Active Substance: DEXTROSE MONOHYDRATE
     Indication: Hyperinsulinaemic hypoglycaemia
  2. DEXTROSE [Suspect]
     Active Substance: DEXTROSE MONOHYDRATE
  3. POTASSIUM CHLORIDE [Concomitant]
     Active Substance: POTASSIUM CHLORIDE
  4. GLICLAZIDE [Concomitant]
     Active Substance: GLICLAZIDE

REACTIONS (2)
  - Diabetic hepatopathy [Recovering/Resolving]
  - Oedema peripheral [Unknown]
